FAERS Safety Report 16967725 (Version 1)
Quarter: 2019Q4

REPORT INFORMATION
  Report Type: Report from Study
  Country: US (occurrence: US)
  Receive Date: 20191028
  Receipt Date: 20191028
  Transmission Date: 20200122
  Serious: Yes (Hospitalization)
  Sender: FDA-Public Use
  Company Number: NVSC2019US010748

PATIENT
  Age: 72 Year
  Sex: Female
  Weight: 55.6 kg

DRUGS (4)
  1. AFINITOR [Suspect]
     Active Substance: EVEROLIMUS
     Indication: BREAST CANCER
     Dosage: CODE NOT BROKEN
     Route: 048
     Dates: start: 20161118, end: 20170120
  2. BLINDED NO TREATMENT RECEIVED [Suspect]
     Active Substance: INVESTIGATIONAL PRODUCT
     Indication: BREAST CANCER
     Dosage: CODE NOT BROKEN
     Route: 048
     Dates: start: 20161118, end: 20170120
  3. BLINDED PLACEBO [Suspect]
     Active Substance: INVESTIGATIONAL PRODUCT
     Indication: BREAST CANCER
     Dosage: CODE NOT BROKEN
     Route: 048
     Dates: start: 20161118, end: 20170120
  4. AFINITOR [Suspect]
     Active Substance: EVEROLIMUS
     Indication: BREAST CANCER
     Dosage: CODE NOT BROKEN
     Route: 048
     Dates: start: 20161118, end: 20170120

REACTIONS (2)
  - Hydronephrosis [Recovering/Resolving]
  - Hypokalaemia [Recovering/Resolving]

NARRATIVE: CASE EVENT DATE: 20191014
